FAERS Safety Report 10637366 (Version 2)
Quarter: 2015Q1

REPORT INFORMATION
  Report Type: Spontaneous
  Country: GB (occurrence: None)
  Receive Date: 20141204
  Receipt Date: 20150121
  Transmission Date: 20150720
  Serious: Yes (Hospitalization, Other)
  Sender: FDA-Public Use
  Company Number: KAD201411-001552

PATIENT
  Age: 43 Year
  Sex: Male

DRUGS (6)
  1. HYOSCINE [Concomitant]
     Active Substance: SCOPOLAMINE
  2. RIBAVIRIN. [Suspect]
     Active Substance: RIBAVIRIN
     Indication: HEPATITIS C
     Dosage: 600
     Route: 048
     Dates: start: 201405, end: 201410
  3. METHADONE [Concomitant]
     Active Substance: METHADONE HYDROCHLORIDE
  4. INTERFERON ALFACON-1 [Suspect]
     Active Substance: INTERFERON ALFACON-1
     Indication: HEPATITIS C
     Route: 058
     Dates: start: 201405, end: 201410
  5. CLOZARIL [Suspect]
     Active Substance: CLOZAPINE
     Indication: SCHIZOPHRENIA
     Route: 048
     Dates: start: 20041013
  6. LANSOPRAZOLE. [Concomitant]
     Active Substance: LANSOPRAZOLE

REACTIONS (8)
  - Platelet count decreased [None]
  - Neutrophil count decreased [None]
  - Lower respiratory tract infection [None]
  - Sepsis [None]
  - White blood cell count decreased [None]
  - Haemophilus infection [None]
  - Confusional state [None]
  - Staphylococcal infection [None]
